FAERS Safety Report 7276301-9 (Version None)
Quarter: 2011Q1

REPORT INFORMATION
  Report Type: 
  Country: None (occurrence: None)
  Receive Date: 20110204
  Receipt Date: 20110127
  Transmission Date: 20110831
  Serious: Yes (Death, Hospitalization)
  Sender: FDA-Public Use
  Company Number: A0891324A

PATIENT
  Age: 83 Year
  Sex: Female

DRUGS (4)
  1. ACYCLOVIR [Concomitant]
  2. DIGOXIN [Concomitant]
  3. ARZERRA [Suspect]
     Route: 042
     Dates: start: 20100301
  4. MULTIVITAMIN [Concomitant]

REACTIONS (8)
  - PLATELET COUNT DECREASED [None]
  - RED BLOOD CELL COUNT DECREASED [None]
  - OVERDOSE [None]
  - DEATH [None]
  - BLISTER [None]
  - CHEST PAIN [None]
  - PNEUMONIA [None]
  - RASH VESICULAR [None]
